FAERS Safety Report 12897535 (Version 1)
Quarter: 2016Q4

REPORT INFORMATION
  Report Type: Report from Study
  Country: US (occurrence: US)
  Receive Date: 20161031
  Receipt Date: 20161031
  Transmission Date: 20170207
  Serious: Yes (Other)
  Sender: FDA-Public Use
  Company Number: US-SAOL THERAPEUTICS-2016SAO00950

PATIENT
  Sex: Male

DRUGS (2)
  1. MORPHINE [Suspect]
     Active Substance: MORPHINE
     Dosage: 22.389 MG, \DAY
     Route: 037
     Dates: start: 20120421
  2. COMPOUNDED BACLOFEN [Suspect]
     Active Substance: BACLOFEN
     Dosage: 380.61 ?G, \DAY
     Route: 037
     Dates: start: 20120421

REACTIONS (8)
  - Restlessness [Recovered/Resolved]
  - Device dislocation [Recovered/Resolved]
  - Back pain [Recovered/Resolved]
  - Drug withdrawal syndrome [Recovered/Resolved]
  - Device infusion issue [Recovered/Resolved]
  - Pain in extremity [Recovered/Resolved]
  - Vomiting [Recovered/Resolved]
  - Irritability [Recovered/Resolved]

NARRATIVE: CASE EVENT DATE: 20110714
